FAERS Safety Report 8864964 (Version 1)
Quarter: 2012Q4

REPORT INFORMATION
  Report Type: 
  Country: US (occurrence: US)
  Receive Date: 20121024
  Receipt Date: 20121024
  Transmission Date: 20130627
  Serious: No
  Sender: FDA-Public Use
  Company Number: US-AMGEN-USASP2012000682

PATIENT
  Age: 33 Year
  Sex: Male

DRUGS (4)
  1. ENBREL [Suspect]
     Indication: PRODUCT USED FOR UNKNOWN INDICATION
     Dosage: 50 mg, qwk
     Route: 058
  2. PERCOCET [Concomitant]
     Dosage: UNK
  3. IBUPROFEN [Concomitant]
     Dosage: 200 mg, UNK
  4. MULTIVITAMIN [Concomitant]
     Dosage: UNK

REACTIONS (1)
  - Fatigue [Unknown]
